FAERS Safety Report 9383784 (Version 1)
Quarter: 2013Q3

REPORT INFORMATION
  Report Type: Spontaneous
  Country: CH (occurrence: CH)
  Receive Date: 20130704
  Receipt Date: 20130704
  Transmission Date: 20140515
  Serious: Yes (Other)
  Sender: FDA-Public Use
  Company Number: CH-009507513-1306CHE004503

PATIENT
  Age: 56 Year
  Sex: Male
  Weight: 70 kg

DRUGS (3)
  1. REMERON [Suspect]
     Indication: DEPRESSION
     Dosage: UNK, QD
     Route: 048
     Dates: start: 201107
  2. CIPRALEX [Suspect]
     Indication: DEPRESSION
     Dosage: 20 MG, QD
     Route: 048
     Dates: start: 201109
  3. RITALIN [Suspect]
     Indication: ATTENTION DEFICIT/HYPERACTIVITY DISORDER
     Dosage: UNK, QD
     Route: 048
     Dates: start: 201205

REACTIONS (5)
  - Myoclonus [Not Recovered/Not Resolved]
  - Muscle spasms [Recovering/Resolving]
  - Unevaluable event [Unknown]
  - Therapeutic response unexpected [Unknown]
  - Depression [Unknown]
